FAERS Safety Report 7450258-X (Version None)
Quarter: 2011Q2

REPORT INFORMATION
  Report Type: 
  Country: None (occurrence: None)
  Receive Date: 20110502
  Receipt Date: 20110427
  Transmission Date: 20111010
  Serious: Yes (Death)
  Sender: FDA-Public Use
  Company Number: FR-ASTELLAS-2011US001877

PATIENT
  Sex: Male
  Weight: 80 kg

DRUGS (6)
  1. PROPOFOL [Concomitant]
     Indication: SEDATION
     Dosage: UNK
     Route: 042
     Dates: start: 20110402, end: 20110405
  2. NORADRENALIN [Concomitant]
     Indication: SEPSIS
     Dosage: UNK
     Route: 042
     Dates: start: 20110402, end: 20110405
  3. LINEZOLID [Concomitant]
     Indication: SEPSIS
     Dosage: 1200 MG, UNKNOWN/D
     Route: 042
     Dates: start: 20110403, end: 20110405
  4. AMBISOME [Suspect]
     Indication: PRODUCT USED FOR UNKNOWN INDICATION
     Dosage: UNK
     Route: 042
  5. TIENAM [Concomitant]
     Indication: SEPSIS
     Dosage: 1000 UNK, UNKNOWN/D
     Route: 042
     Dates: start: 20110402, end: 20110405
  6. CIPROFLOXACIN HCL [Concomitant]
     Indication: SEPSIS
     Dosage: 800 MG, UNKNOWN/D
     Route: 042
     Dates: start: 20110402, end: 20110405

REACTIONS (2)
  - CARDIO-RESPIRATORY ARREST [None]
  - MULTI-ORGAN DISORDER [None]
